FAERS Safety Report 20698702 (Version 1)
Quarter: 2022Q2

REPORT INFORMATION
  Report Type: Spontaneous
  Country: GB (occurrence: GB)
  Receive Date: 20220412
  Receipt Date: 20220412
  Transmission Date: 20220721
  Serious: Yes (Death, Other)
  Sender: FDA-Public Use
  Company Number: GB-CELLTRION INC.-2022GB004367

PATIENT

DRUGS (11)
  1. RITUXIMAB [Suspect]
     Active Substance: RITUXIMAB
     Indication: Acute lymphocytic leukaemia
     Dosage: STANDARD-OF-CARE INDUCTION THERAPY PLUS FOUR DOSES OF INTRAVENOUS RITUXIMAB ((375 MG/M? ON DAYS 3, 1
     Route: 042
  2. DEXAMETHASONE [Suspect]
     Active Substance: DEXAMETHASONE
     Indication: Premedication
     Dosage: 5-7 DAY PREPHASE OF ORAL DEXAMETHASONE 6 MG/M2 PER DAY
     Route: 048
  3. DEXAMETHASONE [Suspect]
     Active Substance: DEXAMETHASONE
     Indication: Acute lymphocytic leukaemia
     Dosage: 10 MG/M2 ON DAYS 1-4, 8-11 AND 15-18
     Route: 048
  4. DAUNORUBICIN [Suspect]
     Active Substance: DAUNORUBICIN
     Indication: Acute lymphocytic leukaemia
     Dosage: 30 MG/M2 ON DAYS 1, 8, 15 AND 21
     Route: 042
  5. VINCRISTINE [Suspect]
     Active Substance: VINCRISTINE
     Indication: Acute lymphocytic leukaemia
     Dosage: 1.4 MG/M2 (2 MG MAXIMUM) ON DAYS 1, 18, 15 AND 21
  6. VINCRISTINE [Suspect]
     Active Substance: VINCRISTINE
     Dosage: 2 YEARS OF ORAL MAINTENANCE THERAPY WITH 3-MONTHLY VINCRISTINE AND STEROID PULSES (STANDARD-RISK TRE
     Route: 048
  7. METHOTREXATE [Suspect]
     Active Substance: METHOTREXATE
     Indication: Acute lymphocytic leukaemia
     Dosage: 12.5 MILLIGRAM ON DAY 14
     Route: 037
  8. METHOTREXATE [Suspect]
     Active Substance: METHOTREXATE
     Dosage: STANDARD-RISK TREATMENT WAS WITH HIGH DOSE METHOTREXATE, FOUR CONSOLIDATION COURSES (WHICH INCLUDED
  9. ASPARAGINASE [Suspect]
     Active Substance: ASPARAGINASE
     Indication: Acute lymphocytic leukaemia
     Dosage: 1000 IU/M2 ON DAY 4 AND 18 TO PATIENTS AGED 40 YEARS AND YOUNGER, AND ON DAY 18 ONLY TO THOSE AGED 4
     Route: 042
  10. IMATINIB [Suspect]
     Active Substance: IMATINIB
     Indication: Acute lymphocytic leukaemia
     Dosage: CONTINUOUS ORAL IMATINIB FROM DAY 1, STARTING AT 400 MG AND ESCALATING TO 600 MG, GIVEN DAILY
     Route: 048
  11. IMATINIB [Suspect]
     Active Substance: IMATINIB
     Dosage: CONTINUOUS ORAL IMATINIB FROM DAY 1, STARTING AT 400 MG AND ESCALATING TO 600 MG, GIVEN DAILY
     Route: 048

REACTIONS (37)
  - Death [Fatal]
  - Death [Fatal]
  - Second primary malignancy [Unknown]
  - Haemorrhage intracranial [Unknown]
  - Metabolic disorder [Unknown]
  - Febrile neutropenia [Unknown]
  - Granulocytopenia [Unknown]
  - Myelosuppression [Unknown]
  - Pancytopenia [Unknown]
  - Pancytopenia [Unknown]
  - Sepsis [Unknown]
  - Blood disorder [Unknown]
  - Anaemia [Unknown]
  - Gastrointestinal disorder [Unknown]
  - Infection [Unknown]
  - Infection [Unknown]
  - Bacterial infection [Unknown]
  - Hyperglycaemia [Unknown]
  - Adverse event [Unknown]
  - Adverse event [Unknown]
  - Adverse event [Unknown]
  - Metabolic disorder [Unknown]
  - Disease recurrence [Unknown]
  - Disease recurrence [Unknown]
  - Disease recurrence [Unknown]
  - Blood disorder [Unknown]
  - Anaemia [Unknown]
  - Gastrointestinal disorder [Unknown]
  - Constipation [Unknown]
  - Diarrhoea [Unknown]
  - Nausea [Unknown]
  - Illness [Unknown]
  - Nervous system disorder [Unknown]
  - Headache [Unknown]
  - Skin disorder [Unknown]
  - Alopecia [Unknown]
  - Off label use [Unknown]
